FAERS Safety Report 24058630 (Version 2)
Quarter: 2024Q3

REPORT INFORMATION
  Report Type: Spontaneous
  Country: US (occurrence: None)
  Receive Date: 20240708
  Receipt Date: 20240811
  Transmission Date: 20241016
  Serious: No
  Sender: ASTRAZENECA
  Company Number: 2024A147187

PATIENT

DRUGS (2)
  1. FASENRA [Suspect]
     Active Substance: BENRALIZUMAB
     Route: 058
  2. DUPIXENT [Concomitant]
     Active Substance: DUPILUMAB
     Indication: Eczema

REACTIONS (3)
  - Gastrointestinal disorder [Unknown]
  - Depression [Unknown]
  - Anxiety [Unknown]
